FAERS Safety Report 19890834 (Version 4)
Quarter: 2021Q4

REPORT INFORMATION
  Report Type: Report from Study
  Country: US (occurrence: US)
  Receive Date: 20210928
  Receipt Date: 20211018
  Transmission Date: 20220303
  Serious: Yes (Hospitalization)
  Sender: FDA-Public Use
  Company Number: US-PFIZER INC-202101141257

PATIENT
  Age: 75 Year
  Sex: Female
  Weight: 59.1 kg

DRUGS (10)
  1. NIRMATRELVIR [Suspect]
     Active Substance: NIRMATRELVIR
     Indication: Renal impairment
     Dosage: 100 MG, DAILY
     Route: 048
     Dates: start: 20210831, end: 20210831
  2. RITONAVIR [Suspect]
     Active Substance: RITONAVIR
     Indication: Renal impairment
     Dosage: 100 MG, 2X/DAY (/12H)
     Route: 048
     Dates: start: 20210830, end: 20210901
  3. NIFEDIPINE [Suspect]
     Active Substance: NIFEDIPINE
     Indication: Hypertension
     Dosage: 60 MG, DAILY
     Route: 048
     Dates: start: 20201217
  4. HYDRALAZINE [Suspect]
     Active Substance: HYDRALAZINE HYDROCHLORIDE
     Indication: Hypertension
     Dosage: 100 MG, DAILY (HS)
     Route: 048
     Dates: start: 20210527
  5. ASPIRIN [Concomitant]
     Active Substance: ASPIRIN
     Indication: Prophylaxis
     Dosage: 81 MG, DAILY
     Route: 048
     Dates: start: 20201030
  6. BUPROPION [Concomitant]
     Active Substance: BUPROPION
     Indication: Depression
     Dosage: 156 MG, DAILY
     Route: 048
     Dates: start: 20201017
  7. NOVOLIN 70/30 [Concomitant]
     Active Substance: INSULIN HUMAN
     Indication: Diabetes mellitus
     Dosage: 10 IU, 2X/DAY
     Route: 058
     Dates: start: 2020
  8. QUETIAPINE [Concomitant]
     Active Substance: QUETIAPINE
     Indication: Depression
     Dosage: 100 MG, DAILY
     Route: 048
     Dates: start: 20201217
  9. VITAMIN B12 [Concomitant]
     Active Substance: CYANOCOBALAMIN
     Indication: Hypovitaminosis
     Dosage: 1000 MG, DAILY
     Route: 048
     Dates: start: 20201230
  10. VITAMIN D3 [Concomitant]
     Active Substance: CHOLECALCIFEROL
     Indication: Hypovitaminosis
     Dosage: 2000 MG, DAILY
     Route: 048
     Dates: start: 20201230

REACTIONS (3)
  - Pulmonary oedema [Recovered/Resolved]
  - Acute kidney injury [Recovered/Resolved]
  - Pneumonia [Recovered/Resolved]

NARRATIVE: CASE EVENT DATE: 20210901
